FAERS Safety Report 6792045-1 (Version None)
Quarter: 2010Q2

REPORT INFORMATION
  Report Type: 
  Country: None (occurrence: None)
  Receive Date: 20100624
  Receipt Date: 20080718
  Transmission Date: 20101027
  Serious: No
  Sender: FDA-Public Use
  Company Number: US-PFIZER INC-2008060045

PATIENT
  Sex: Male
  Weight: 16 kg

DRUGS (2)
  1. GENOTROPIN [Suspect]
     Indication: PRADER-WILLI SYNDROME
     Dates: start: 20060301
  2. LEVOTHYROXINE [Concomitant]

REACTIONS (1)
  - SKIN DISCOLOURATION [None]
